FAERS Safety Report 9500151 (Version 2)
Quarter: 2013Q3

REPORT INFORMATION
  Report Type: Report from Study
  Country: CN (occurrence: CN)
  Receive Date: 20130905
  Receipt Date: 20130910
  Transmission Date: 20140515
  Serious: Yes (Death)
  Sender: FDA-Public Use
  Company Number: PHHY2013CN096845

PATIENT
  Sex: Female

DRUGS (1)
  1. GLIVEC [Suspect]
     Indication: GASTROINTESTINAL STROMAL TUMOUR
     Dosage: 400 MG, QD, 1 TIME PER DAY
     Route: 048
     Dates: start: 20091120, end: 201308

REACTIONS (2)
  - Gastrointestinal stromal tumour [Fatal]
  - Malignant neoplasm progression [Fatal]
